FAERS Safety Report 19754973 (Version 2)
Quarter: 2021Q3

REPORT INFORMATION
  Report Type: Report from Study
  Country: AE (occurrence: AE)
  Receive Date: 20210827
  Receipt Date: 20210919
  Transmission Date: 20211014
  Serious: Yes (Hospitalization, Other)
  Sender: FDA-Public Use
  Company Number: NVSC2021AE030044

PATIENT
  Age: 48 Year
  Sex: Female

DRUGS (2)
  1. KISQALI [Suspect]
     Active Substance: RIBOCICLIB
     Dosage: 600 MG, QD
     Route: 048
  2. KISQALI [Suspect]
     Active Substance: RIBOCICLIB
     Indication: BREAST CANCER METASTATIC
     Dosage: 600 MG, QD (7 DAYS REST PERIOD)
     Route: 048
     Dates: start: 20210130, end: 20210808

REACTIONS (18)
  - Metastases to bone [Not Recovered/Not Resolved]
  - Pain in extremity [Not Recovered/Not Resolved]
  - Cough [Not Recovered/Not Resolved]
  - Gait disturbance [Not Recovered/Not Resolved]
  - Back pain [Recovering/Resolving]
  - Malignant neoplasm progression [Not Recovered/Not Resolved]
  - Eye movement disorder [Recovering/Resolving]
  - Contusion [Not Recovered/Not Resolved]
  - Vomiting [Recovered/Resolved]
  - Pain [Not Recovered/Not Resolved]
  - Pruritus [Not Recovered/Not Resolved]
  - Insomnia [Not Recovered/Not Resolved]
  - Palpitations [Unknown]
  - Sleep disorder [Not Recovered/Not Resolved]
  - Headache [Recovering/Resolving]
  - Hand deformity [Not Recovered/Not Resolved]
  - Breast cancer metastatic [Not Recovered/Not Resolved]
  - Alopecia [Unknown]

NARRATIVE: CASE EVENT DATE: 2021
